FAERS Safety Report 9005420 (Version 3)
Quarter: 2013Q1

REPORT INFORMATION
  Report Type: Spontaneous
  Country: IT (occurrence: IT)
  Receive Date: 20130108
  Receipt Date: 20130307
  Transmission Date: 20140127
  Serious: Yes (Other)
  Sender: FDA-Public Use
  Company Number: IT-JNJFOC-20130101650

PATIENT
  Age: 13 Year
  Sex: Female
  Weight: 57 kg

DRUGS (6)
  1. SPORANOX [Suspect]
     Indication: INTENTIONAL OVERDOSE
     Dosage: 8 CAPSULES
     Route: 048
     Dates: start: 20130102, end: 20130102
  2. PANTOPRAZOLE [Suspect]
     Indication: INTENTIONAL OVERDOSE
     Dosage: 8 CAPSULES
     Route: 048
     Dates: start: 20130102, end: 20130102
  3. ALPRAZOLAM [Suspect]
     Indication: INTENTIONAL OVERDOSE
     Dosage: 5 MG TOTAL
     Route: 048
     Dates: start: 20130102, end: 20130102
  4. LAROXYL [Suspect]
     Indication: INTENTIONAL OVERDOSE
     Dosage: 8 CAPSULES
     Route: 048
     Dates: start: 20130102, end: 20130102
  5. MORNIFLUMATE [Suspect]
     Indication: INTENTIONAL OVERDOSE
     Route: 048
     Dates: start: 20130102, end: 20130102
  6. ESOMEPRAZOLE MAGNESIUM [Suspect]
     Indication: INTENTIONAL OVERDOSE
     Dosage: 8 CAPSULES
     Route: 048
     Dates: start: 20130102, end: 20130102

REACTIONS (5)
  - Self injurious behaviour [Unknown]
  - Sluggishness [Unknown]
  - Aphasia [Recovered/Resolved]
  - Sopor [Recovered/Resolved]
  - Overdose [Unknown]
